FAERS Safety Report 6716655-2 (Version None)
Quarter: 2010Q2

REPORT INFORMATION
  Report Type: 
  Country: None (occurrence: None)
  Receive Date: 20100509
  Receipt Date: 20100430
  Transmission Date: 20101027
  Serious: Yes (Hospitalization)
  Sender: FDA-Public Use
  Company Number: JP-BRISTOL-MYERS SQUIBB COMPANY-15094147

PATIENT
  Age: 76 Year
  Sex: Male
  Weight: 70 kg

DRUGS (4)
  1. ERBITUX [Suspect]
     Indication: COLON CANCER
     Dosage: 06JAN09,RECENT INF:23JAN09,12-DEC-2008-28AUG09 INTERRUPTED AND RESTARTED ON 6MAR10
     Route: 042
     Dates: start: 20081128
  2. IRINOTECAN [Concomitant]
     Indication: COLON CANCER
     Dosage: 28NOV:250MG 19DEC8:200MG 6JAN9:175MG (3RD) 13MAR09:175MG (RESTARTED) 17APR-19JUN09:150MG (63D)
     Route: 042
     Dates: start: 20081128, end: 20090619
  3. POLARAMINE [Concomitant]
     Indication: PREMEDICATION
     Route: 048
     Dates: start: 20081128, end: 20090828
  4. DECADRON [Concomitant]
     Indication: PREMEDICATION
     Route: 042

REACTIONS (1)
  - LIVER DISORDER [None]
